FAERS Safety Report 23286562 (Version 1)
Quarter: 2023Q4

REPORT INFORMATION
  Report Type: Spontaneous
  Country: US (occurrence: US)
  Receive Date: 20231212
  Receipt Date: 20231212
  Transmission Date: 20240110
  Serious: No
  Sender: FDA-Public Use
  Company Number: US-SA-SAC20231204000745

PATIENT
  Sex: Male

DRUGS (3)
  1. AMBIEN [Suspect]
     Active Substance: ZOLPIDEM TARTRATE
     Indication: Insomnia
     Dosage: UNK
  2. QUETIAPINE FUMARATE [Suspect]
     Active Substance: QUETIAPINE FUMARATE
     Indication: Insomnia
     Dosage: UNK
  3. TEMAZEPAM [Concomitant]
     Active Substance: TEMAZEPAM
     Dosage: UNK

REACTIONS (4)
  - Weight increased [Unknown]
  - Lethargy [Unknown]
  - Blood glucose increased [Unknown]
  - Drug ineffective [Unknown]
